FAERS Safety Report 6879827-2 (Version None)
Quarter: 2010Q3

REPORT INFORMATION
  Report Type: 
  Country: None (occurrence: None)
  Receive Date: 20100728
  Receipt Date: 20100720
  Transmission Date: 20110219
  Serious: Yes (Other)
  Sender: FDA-Public Use
  Company Number: DE-ASTRAZENECA-2010SE33854

PATIENT
  Sex: Male

DRUGS (4)
  1. NEXIUM [Suspect]
     Indication: BARRETT'S OESOPHAGUS
     Route: 048
     Dates: start: 20000101
  2. NEXIUM [Suspect]
     Route: 048
  3. ANTRA [Suspect]
     Indication: BARRETT'S OESOPHAGUS
     Route: 048
     Dates: start: 19900101, end: 20000101
  4. PROTON PUMP INHIBITOR [Concomitant]
     Dates: start: 19800101

REACTIONS (1)
  - FRACTURED SACRUM [None]
